FAERS Safety Report 10796337 (Version 2)
Quarter: 2015Q2

REPORT INFORMATION
  Report Type: Spontaneous
  Country: FR (occurrence: FR)
  Receive Date: 20150216
  Receipt Date: 20150409
  Transmission Date: 20150821
  Serious: Yes (Other)
  Sender: FDA-Public Use
  Company Number: FR-ROCHE-1538354

PATIENT
  Sex: Female
  Weight: 78 kg

DRUGS (1)
  1. XELODA [Suspect]
     Active Substance: CAPECITABINE
     Indication: PANCREATIC CARCINOMA
     Route: 048

REACTIONS (2)
  - Visual acuity reduced [Recovered/Resolved with Sequelae]
  - Off label use [Unknown]
